FAERS Safety Report 9632121 (Version 2)
Quarter: 2013Q4

REPORT INFORMATION
  Report Type: Spontaneous
  Country: US (occurrence: US)
  Receive Date: 20131018
  Receipt Date: 20131120
  Transmission Date: 20140711
  Serious: No
  Sender: FDA-Public Use
  Company Number: US-PFIZER INC-2013296500

PATIENT
  Sex: Female
  Weight: 48.98 kg

DRUGS (3)
  1. FLECTOR [Suspect]
     Indication: BACK PAIN
     Dosage: 1/2 PATCH EVERY 12 HOURS
     Route: 061
     Dates: start: 20130930, end: 20131014
  2. ALPRAZOLAM [Concomitant]
     Dosage: 0.5 MG, UNK
  3. LEVOTHYROXINE [Concomitant]
     Dosage: 75 UG, UNK

REACTIONS (5)
  - Abdominal pain upper [Not Recovered/Not Resolved]
  - Constipation [Not Recovered/Not Resolved]
  - Flatulence [Not Recovered/Not Resolved]
  - Dizziness [Not Recovered/Not Resolved]
  - Incorrect dose administered [Unknown]
